FAERS Safety Report 6034867-0 (Version None)
Quarter: 2009Q1

REPORT INFORMATION
  Report Type: 
  Country: None (occurrence: None)
  Receive Date: 20090112
  Receipt Date: 20090107
  Transmission Date: 20090719
  Serious: Yes (Hospitalization, Other)
  Sender: FDA-Public Use
  Company Number: CA-ELI_LILLY_AND_COMPANY-CA200809001182

PATIENT
  Age: 69 Year
  Sex: Female

DRUGS (19)
  1. FORTEO [Suspect]
     Indication: OSTEOPOROSIS
     Dosage: 20 UG, DAILY (1/D)
     Route: 058
     Dates: start: 20080602
  2. PREDNISONE TAB [Concomitant]
  3. OMEPRAZOLE [Concomitant]
  4. SULFATRIM [Concomitant]
  5. ZITHROMYCIN [Concomitant]
  6. BUPROPION HCL [Concomitant]
  7. NEO-CAL D [Concomitant]
  8. FERROUS GLUCONATE [Concomitant]
  9. GLUCOSAMINE [Concomitant]
  10. CHONDROITIN [Concomitant]
  11. CALCIUM CITRATE [Concomitant]
  12. ASCORBIC ACID [Concomitant]
  13. VITAMIN B-12 [Concomitant]
  14. OXYGEN [Concomitant]
     Dosage: UNK, AS NEEDED
     Route: 055
     Dates: end: 20080101
  15. OXYGEN [Concomitant]
     Dosage: 3 LITER, OTHER
     Route: 055
     Dates: start: 20080101
  16. ELTROXIN [Concomitant]
  17. RANITIDINE [Concomitant]
  18. CITALOPRAM HYDROBROMIDE [Concomitant]
  19. VITAMIN B1 TAB [Concomitant]

REACTIONS (4)
  - ASPERGILLOSIS [None]
  - CHEST PAIN [None]
  - COLLAPSE OF LUNG [None]
  - DYSPNOEA [None]
